FAERS Safety Report 16822575 (Version 4)
Quarter: 2019Q4

REPORT INFORMATION
  Report Type: Spontaneous
  Country: US (occurrence: US)
  Receive Date: 20190918
  Receipt Date: 20191217
  Transmission Date: 20200122
  Serious: Yes (Other)
  Sender: FDA-Public Use
  Company Number: US-PFIZER INC-2019370037

PATIENT
  Age: 51 Year
  Sex: Female

DRUGS (1)
  1. RELPAX [Suspect]
     Active Substance: ELETRIPTAN HYDROBROMIDE
     Indication: HEADACHE
     Dosage: 40 MG, 1X/DAY(1 TABLET DAILY NEEDED MAY REPEAT ONCE IN 2 HOURS)
     Route: 048

REACTIONS (5)
  - Malaise [Unknown]
  - Product use in unapproved indication [Unknown]
  - Drug dependence [Unknown]
  - Off label use [Unknown]
  - Recalled product administered [Unknown]
